FAERS Safety Report 11935838 (Version 1)
Quarter: 2016Q1

REPORT INFORMATION
  Report Type: Spontaneous
  Country: JP (occurrence: JP)
  Receive Date: 20160121
  Receipt Date: 20160121
  Transmission Date: 20160526
  Serious: Yes (Other)
  Sender: FDA-Public Use
  Company Number: JP-TEVA-622872ISR

PATIENT
  Age: 59 Year
  Sex: Female
  Weight: 60 kg

DRUGS (19)
  1. FLUNITRAZEPAM [Concomitant]
     Active Substance: FLUNITRAZEPAM
     Indication: DEPRESSION
     Dosage: 2MG
     Route: 065
  2. FENTANYL. [Suspect]
     Active Substance: FENTANYL
     Indication: INDUCTION OF ANAESTHESIA
     Dosage: 0.1MG
     Route: 065
  3. REMIFENTANIL [Interacting]
     Active Substance: REMIFENTANIL
     Indication: INDUCTION OF ANAESTHESIA
     Dosage: 0.25MICROG/KG/MIN
     Route: 065
  4. PROPOFOL. [Interacting]
     Active Substance: PROPOFOL
     Indication: INDUCTION OF ANAESTHESIA
     Dosage: 120MG
     Route: 065
  5. CHLORPROMAZINE, PROMETHAZINE, PHENOBARBITAL [Concomitant]
     Dosage: 12.5/12.5/30MG
     Route: 065
  6. VALPROATE [Concomitant]
     Active Substance: VALPROATE SODIUM
     Dosage: 200MG
     Route: 065
  7. ROPIVACAINE [Interacting]
     Active Substance: ROPIVACAINE
     Indication: ANAESTHESIA
     Dosage: 0.2%
     Route: 008
  8. BROMAZEPAM [Concomitant]
     Active Substance: BROMAZEPAM
     Indication: DEPRESSION
     Dosage: 23MG
     Route: 065
  9. DEXAMETHASONE. [Concomitant]
     Active Substance: DEXAMETHASONE
     Dosage: 6.6MG
     Route: 065
  10. OLANZAPINE. [Interacting]
     Active Substance: OLANZAPINE
     Indication: DEPRESSION
     Dosage: 5MG
     Route: 065
  11. BUPIVACAINE [Interacting]
     Active Substance: BUPIVACAINE
     Indication: ANAESTHESIA
     Dosage: 4.0 ML OF 0.5%
     Route: 008
  12. DROPERIDOL. [Interacting]
     Active Substance: DROPERIDOL
     Indication: INDUCTION OF ANAESTHESIA
     Dosage: 1.25MG
     Route: 065
  13. SEVOFLURANE. [Interacting]
     Active Substance: SEVOFLURANE
     Indication: INDUCTION OF ANAESTHESIA
     Dosage: 1.5%
     Route: 065
  14. ROCURONIUM BROMIDE. [Concomitant]
     Active Substance: ROCURONIUM BROMIDE
     Indication: HYPOTONIA
     Dosage: 40MG
     Route: 065
  15. CLOMIPRAMINE [Interacting]
     Active Substance: CLOMIPRAMINE
     Indication: DEPRESSION
     Dosage: 30MG
     Route: 065
  16. BUPIVACAINE [Interacting]
     Active Substance: BUPIVACAINE
     Indication: ANAESTHESIA
     Dosage: 3.5ML OF 5% (FIRST OPERATION)
     Route: 065
  17. LITHIUM. [Concomitant]
     Active Substance: LITHIUM
     Indication: BIPOLAR I DISORDER
     Dosage: 200MG
     Route: 065
  18. LEVOMEPROMAZINE [Interacting]
     Active Substance: LEVOMEPROMAZINE
     Indication: DEPRESSION
     Dosage: 5MG
     Route: 065
  19. ETHYL LOFLAZEPATE [Concomitant]
     Active Substance: ETHYL LOFLAZEPATE
     Indication: DEPRESSION
     Dosage: 1MG
     Route: 065

REACTIONS (2)
  - Drug interaction [Recovering/Resolving]
  - Hypotension [Recovering/Resolving]
